FAERS Safety Report 6322110-4 (Version None)
Quarter: 2009Q3

REPORT INFORMATION
  Report Type: 
  Country: None (occurrence: None)
  Receive Date: 20090824
  Receipt Date: 20090820
  Transmission Date: 20100115
  Serious: Yes (Death, Hospitalization)
  Sender: FDA-Public Use
  Company Number: ZA-JNJFOC-20090806505

PATIENT
  Age: 52 Year
  Sex: Male

DRUGS (1)
  1. RISPERDAL [Suspect]
     Indication: DRUG USE FOR UNKNOWN INDICATION
     Route: 065

REACTIONS (5)
  - ABNORMAL BEHAVIOUR [None]
  - ADVERSE EVENT [None]
  - DEPRESSION [None]
  - ENURESIS [None]
  - SKIN ULCER [None]
